FAERS Safety Report 24795570 (Version 2)
Quarter: 2025Q3

REPORT INFORMATION
  Report Type: Report from Study
  Country: IN (occurrence: IN)
  Receive Date: 20241231
  Receipt Date: 20250803
  Transmission Date: 20251020
  Serious: Yes (Death, Other)
  Sender: ALEXION PHARMACEUTICALS
  Company Number: IN-AstraZeneca-CH-00774566A

PATIENT
  Age: 63 Year
  Sex: Female

DRUGS (1)
  1. BENRALIZUMAB [Suspect]
     Active Substance: BENRALIZUMAB
     Indication: Asthma
     Dosage: 30 MILLIGRAM, Q4W

REACTIONS (1)
  - Death [Fatal]

NARRATIVE: CASE EVENT DATE: 20241225
